FAERS Safety Report 5336720-4 (Version None)
Quarter: 2007Q2

REPORT INFORMATION
  Report Type: 
  Country: None (occurrence: None)
  Receive Date: 20070529
  Receipt Date: 20070515
  Transmission Date: 20071010
  Serious: Yes (Hospitalization)
  Sender: FDA-Public Use
  Company Number: DE-BAYER-200710608BVD

PATIENT

DRUGS (2)
  1. CIPROFLOXACIN HCL [Suspect]
     Indication: DRUG USE FOR UNKNOWN INDICATION
     Route: 042
  2. CIPROFLOXACIN HCL [Suspect]
     Route: 042

REACTIONS (1)
  - THROMBOPHLEBITIS [None]
